FAERS Safety Report 5034353-0 (Version None)
Quarter: 2006Q2

REPORT INFORMATION
  Report Type: 
  Country: None (occurrence: None)
  Receive Date: 20060626
  Receipt Date: 20060615
  Transmission Date: 20061013
  Serious: Yes (Death, Hospitalization)
  Sender: FDA-Public Use
  Company Number: FR-ROCHE-452101

PATIENT
  Age: 84 Year
  Sex: Female
  Weight: 45 kg

DRUGS (6)
  1. CELLCEPT [Suspect]
     Indication: DRUG USE FOR UNKNOWN INDICATION
     Route: 048
     Dates: start: 20020101, end: 20060318
  2. DEPAKOTE [Suspect]
     Route: 048
     Dates: start: 20060306, end: 20060317
  3. ZYPREXA [Suspect]
     Route: 048
     Dates: start: 20060306, end: 20060317
  4. CORTANCYL [Concomitant]
     Indication: DRUG USE FOR UNKNOWN INDICATION
     Route: 048
     Dates: start: 19990101
  5. IMOVANE [Concomitant]
  6. TRAMADOL HCL [Concomitant]
     Dosage: TAKEN WHEN NEEDED.
     Dates: start: 20060215

REACTIONS (19)
  - AGGRESSION [None]
  - ANGIOPATHY [None]
  - CANDIDIASIS [None]
  - CONDITION AGGRAVATED [None]
  - CYTOMEGALOVIRUS INFECTION [None]
  - DIARRHOEA [None]
  - DISORIENTATION [None]
  - HAEMOGLOBIN DECREASED [None]
  - INCOHERENT [None]
  - LACRIMATION INCREASED [None]
  - LEUKOCYTOSIS [None]
  - LOGORRHOEA [None]
  - MANIA [None]
  - MENTAL DISORDER [None]
  - NECROSIS ISCHAEMIC [None]
  - PROCTITIS HAEMORRHAGIC [None]
  - RECTAL HAEMORRHAGE [None]
  - RESPIRATORY DISTRESS [None]
  - SEPSIS [None]
